FAERS Safety Report 6636928-1 (Version None)
Quarter: 2010Q1

REPORT INFORMATION
  Report Type: 
  Country: None (occurrence: None)
  Receive Date: 20100316
  Receipt Date: 20100308
  Transmission Date: 20100710
  Serious: Yes (Hospitalization)
  Sender: FDA-Public Use
  Company Number: US-BRISTOL-MYERS SQUIBB COMPANY-15010879

PATIENT
  Age: 72 Year
  Sex: Male

DRUGS (13)
  1. ABILIFY [Suspect]
     Indication: PARKINSON'S DISEASE
     Dates: end: 20100309
  2. ABILIFY [Suspect]
     Indication: HALLUCINATION
     Dates: end: 20100309
  3. ABILIFY [Suspect]
     Indication: DELUSION
     Dates: end: 20100309
  4. ABILIFY [Suspect]
     Indication: AMNESIA
     Dates: end: 20100309
  5. EXELON [Concomitant]
  6. SINEMET [Concomitant]
  7. AMBIEN [Concomitant]
  8. CYMBALTA [Concomitant]
  9. FLOMAX [Concomitant]
  10. MS CONTIN [Concomitant]
  11. PREVACID [Concomitant]
  12. TOPROL-XL [Concomitant]
  13. UROXATRAL [Concomitant]

REACTIONS (2)
  - CORONARY ARTERY BYPASS [None]
  - HEART VALVE REPLACEMENT [None]
